FAERS Safety Report 10681692 (Version 3)
Quarter: 2015Q1

REPORT INFORMATION
  Report Type: Spontaneous
  Country: JP (occurrence: JP)
  Receive Date: 20141230
  Receipt Date: 20150219
  Transmission Date: 20150720
  Serious: Yes (Hospitalization)
  Sender: FDA-Public Use
  Company Number: PHHY2014JP169173

PATIENT
  Age: 75 Year
  Sex: Female

DRUGS (2)
  1. ZOMETA [Suspect]
     Active Substance: ZOLEDRONIC ACID
     Indication: OSTEOPOROSIS PROPHYLAXIS
     Dosage: 5 MG, UNK
     Route: 041
     Dates: start: 200701, end: 200710
  2. ZOMETA [Suspect]
     Active Substance: ZOLEDRONIC ACID
     Indication: METASTASES TO BONE

REACTIONS (9)
  - Toothache [Recovering/Resolving]
  - Alveolar bone resorption [Recovering/Resolving]
  - Off label use [Unknown]
  - Osteonecrosis of jaw [Recovered/Resolved]
  - Gingival swelling [Recovering/Resolving]
  - Purulent discharge [Recovering/Resolving]
  - Loose tooth [Recovering/Resolving]
  - Oral cavity fistula [Recovering/Resolving]
  - Impaired healing [Recovering/Resolving]

NARRATIVE: CASE EVENT DATE: 200801
